FAERS Safety Report 25920581 (Version 1)
Quarter: 2025Q4

REPORT INFORMATION
  Report Type: Spontaneous
  Country: EU (occurrence: EU)
  Receive Date: 20251014
  Receipt Date: 20251014
  Transmission Date: 20260118
  Serious: Yes (Life-Threatening, Hospitalization)
  Sender: SK LIFE SCIENCE
  Company Number: None

PATIENT

DRUGS (3)
  1. XCOPRI [Suspect]
     Active Substance: CENOBAMATE
     Indication: Epilepsy
     Dosage: 25 MILLIGRAM(S), IN 24 HOUR
     Route: 048
     Dates: start: 20250707
  2. VALPROATE SODIUM [Suspect]
     Active Substance: VALPROATE SODIUM
     Indication: Epilepsy
     Dosage: 1060 MILLIGRAM
     Route: 048
     Dates: start: 20150715, end: 20250811
  3. ZOLEDRONIC ACID [Suspect]
     Active Substance: ZOLEDRONIC ACID
     Indication: Osteoporosis
     Dosage: 0.05 MILLIGRAM(S), IN 1 TOTAL
     Route: 042
     Dates: start: 20250731, end: 20250731

REACTIONS (3)
  - Fanconi syndrome acquired [Recovering/Resolving]
  - Hypocalcaemia [Recovered/Resolved]
  - Off label use [Recovered/Resolved]

NARRATIVE: CASE EVENT DATE: 20250801
